FAERS Safety Report 20231548 (Version 4)
Quarter: 2022Q1

REPORT INFORMATION
  Report Type: Report from Study
  Country: RU (occurrence: RU)
  Receive Date: 20211227
  Receipt Date: 20220206
  Transmission Date: 20220423
  Serious: Yes (Hospitalization)
  Sender: FDA-Public Use
  Company Number: RU-NOVARTISPH-NVSC2021RU294709

PATIENT
  Age: 69 Year
  Sex: Female
  Weight: 52.9 kg

DRUGS (5)
  1. RIBOCICLIB [Suspect]
     Active Substance: RIBOCICLIB
     Indication: Breast cancer
     Dosage: 200 MG, DAILY
     Route: 048
     Dates: start: 20190904, end: 20211013
  2. LETROZOLE [Suspect]
     Active Substance: LETROZOLE
     Indication: Breast cancer
     Dosage: 2.5 MG, DAILY
     Route: 048
     Dates: start: 20190904, end: 20211222
  3. PHOSPHOGLIV [Concomitant]
     Indication: Aspartate aminotransferase increased
     Dosage: 6 CAPS, DAILY
     Route: 065
     Dates: start: 20211208
  4. PHOSPHOGLIV [Concomitant]
     Indication: Alanine aminotransferase increased
  5. PHOSPHOGLIV [Concomitant]
     Indication: Blood bilirubin increased

REACTIONS (1)
  - Cholelithiasis [Recovered/Resolved]

NARRATIVE: CASE EVENT DATE: 20211203
